FAERS Safety Report 6074914-3 (Version None)
Quarter: 2009Q1

REPORT INFORMATION
  Report Type: 
  Country: None (occurrence: None)
  Receive Date: 20090212
  Receipt Date: 20090210
  Transmission Date: 20090719
  Serious: Yes (Hospitalization)
  Sender: FDA-Public Use
  Company Number: US-BRISTOL-MYERS SQUIBB COMPANY-14033153

PATIENT
  Age: 64 Year
  Sex: Female
  Weight: 68 kg

DRUGS (7)
  1. ABILIFY [Suspect]
     Indication: BIPOLAR DISORDER
     Route: 048
     Dates: start: 20070701, end: 20070101
  2. ABILIFY [Suspect]
     Indication: ANTIDEPRESSANT THERAPY
     Route: 048
     Dates: start: 20070701, end: 20070101
  3. DEPAKOTE [Suspect]
     Route: 048
  4. DEPAKOTE ER [Suspect]
     Indication: BIPOLAR DISORDER
     Dates: start: 20070728, end: 20070804
  5. EFFEXOR [Concomitant]
     Indication: DEPRESSION
     Route: 048
     Dates: start: 19710101
  6. KLONOPIN [Concomitant]
     Route: 048
     Dates: start: 20070801
  7. CLONAZEPAM [Concomitant]
     Indication: DEPRESSION
     Dates: start: 19830101

REACTIONS (16)
  - ABASIA [None]
  - ABNORMAL BEHAVIOUR [None]
  - ADVERSE DRUG REACTION [None]
  - ANXIETY [None]
  - ASTHENIA [None]
  - BALANCE DISORDER [None]
  - DYSPHASIA [None]
  - DYSPNOEA [None]
  - FALL [None]
  - INSOMNIA [None]
  - LETHARGY [None]
  - LIMB INJURY [None]
  - MALAISE [None]
  - NAUSEA [None]
  - SENSORY DISTURBANCE [None]
  - STUPOR [None]
